FAERS Safety Report 17505324 (Version 2)
Quarter: 2020Q1

REPORT INFORMATION
  Report Type: Report from Study
  Country: US (occurrence: US)
  Receive Date: 20200305
  Receipt Date: 20200324
  Transmission Date: 20200409
  Serious: No
  Sender: FDA-Public Use
  Company Number: US-SHIRE-US202008361

PATIENT
  Sex: Male

DRUGS (2)
  1. FIRAZYR [Suspect]
     Active Substance: ICATIBANT ACETATE
     Indication: PRODUCT USED FOR UNKNOWN INDICATION
     Dosage: UNK(30MG/3ML), AS REQ^D
     Route: 058
     Dates: start: 20160524
  2. 643 (LANADELUMAB) [Suspect]
     Active Substance: LANADELUMAB
     Indication: PRODUCT USED FOR UNKNOWN INDICATION
     Dosage: 300 MILLIGRAM, 1X/2WKS
     Route: 058
     Dates: start: 20181023

REACTIONS (1)
  - Hereditary angioedema [Recovered/Resolved]
